FAERS Safety Report 4928467-0 (Version None)
Quarter: 2006Q1

REPORT INFORMATION
  Report Type: 
  Country: None (occurrence: None)
  Receive Date: 20060223
  Receipt Date: 20060213
  Transmission Date: 20060701
  Serious: Yes (Other)
  Sender: FDA-Public Use
  Company Number: B0412637A

PATIENT
  Age: 12 Year
  Sex: Female

DRUGS (2)
  1. LAMICTAL [Suspect]
     Indication: EPILEPSY
     Dosage: 400 MG/
  2. TOPIRAMATE [Suspect]
     Indication: EPILEPSY
     Dosage: 75 MG

REACTIONS (5)
  - BLOOD ANTIDIURETIC HORMONE INCREASED [None]
  - BRAIN OEDEMA [None]
  - COMPLEX PARTIAL SEIZURES [None]
  - DISEASE RECURRENCE [None]
  - HIPPOCAMPAL SCLEROSIS [None]
